FAERS Safety Report 4492039-5 (Version None)
Quarter: 2004Q4

REPORT INFORMATION
  Report Type: 
  Country: None (occurrence: None)
  Receive Date: 20041101
  Receipt Date: 20041014
  Transmission Date: 20050328
  Serious: Yes (Hospitalization)
  Sender: FDA-Public Use
  Company Number: F01200403204

PATIENT
  Age: 53 Year
  Sex: Male

DRUGS (6)
  1. (OXALIPLATIN) - SOLUTION [Suspect]
     Indication: COLON CANCER METASTATIC
     Route: 042
  2. CPT-11 SOLUTION [Suspect]
     Route: 042
  3. XELODA [Suspect]
     Dosage: 3600 MG FROM D1 TO D14 OR FROM D2 TO D15, Q3W
     Route: 047
     Dates: start: 20031219, end: 20040102
  4. OMEPRAZOLE [Concomitant]
  5. RANITIDINE [Concomitant]
  6. HALOPERIDOL [Concomitant]

REACTIONS (3)
  - ABDOMINAL TENDERNESS [None]
  - ANGINA PECTORIS [None]
  - ELECTROCARDIOGRAM T WAVE INVERSION [None]
